FAERS Safety Report 7551993-5 (Version None)
Quarter: 2011Q2

REPORT INFORMATION
  Report Type: 
  Country: None (occurrence: None)
  Receive Date: 20110616
  Receipt Date: 20110607
  Transmission Date: 20111010
  Serious: Yes (Hospitalization)
  Sender: FDA-Public Use
  Company Number: IT-ASTRAZENECA-2011SE35006

PATIENT
  Sex: Male

DRUGS (10)
  1. LORAZEPAM [Concomitant]
  2. TENORMIN [Suspect]
     Indication: HYPERTENSION
     Route: 048
     Dates: start: 20090101, end: 20100607
  3. ADALAT [Concomitant]
  4. CLONIDINE HCL [Concomitant]
  5. ESCITALOPRAM [Suspect]
     Indication: DEPRESSION
     Route: 048
     Dates: start: 20100521, end: 20100607
  6. RAMIPRIL [Concomitant]
  7. ASPIRIN [Concomitant]
  8. VALSARTAN [Concomitant]
  9. ALDACTONE [Concomitant]
  10. LASIX [Concomitant]

REACTIONS (2)
  - ELECTROCARDIOGRAM QT PROLONGED [None]
  - SINUS BRADYCARDIA [None]
